FAERS Safety Report 7861111-1 (Version None)
Quarter: 2011Q4

REPORT INFORMATION
  Report Type: 
  Country: None (occurrence: None)
  Receive Date: 20111027
  Receipt Date: 20111019
  Transmission Date: 20120403
  Serious: Yes (Life-Threatening, Hospitalization)
  Sender: FDA-Public Use
  Company Number: PH-ELI_LILLY_AND_COMPANY-PH201109006526

PATIENT
  Sex: Male
  Weight: 63 kg

DRUGS (2)
  1. GEMCITABINE HYDROCHLORIDE [Suspect]
     Indication: NON-SMALL CELL LUNG CANCER STAGE IV
     Dosage: 2100 MG, EVERY 21 DAYS/CYCLE
     Route: 042
     Dates: start: 20110909
  2. CISPLATIN [Suspect]
     Indication: NON-SMALL CELL LUNG CANCER STAGE IV
     Dosage: 126 MG, EVERY 21 DAYS/CYCLE
     Route: 042
     Dates: start: 20110909

REACTIONS (4)
  - HYPOKALAEMIA [None]
  - THROMBOCYTOPENIA [None]
  - PYREXIA [None]
  - PNEUMONIA [None]
